FAERS Safety Report 19274212 (Version 1)
Quarter: 2021Q2

REPORT INFORMATION
  Report Type: Spontaneous
  Country: US (occurrence: US)
  Receive Date: 20210519
  Receipt Date: 20210519
  Transmission Date: 20210717
  Serious: Yes (Other)
  Sender: FDA-Public Use
  Company Number: US-UCBSA-2021022276

PATIENT
  Sex: Female

DRUGS (1)
  1. CIMZIA [Suspect]
     Active Substance: CERTOLIZUMAB PEGOL
     Indication: RHEUMATOID ARTHRITIS
     Dosage: 400 MILLIGRAM, EV 4 WEEKS
     Route: 058
     Dates: start: 20200805

REACTIONS (7)
  - Loss of personal independence in daily activities [Unknown]
  - Rash pruritic [Unknown]
  - Fatigue [Unknown]
  - Haemorrhage [Unknown]
  - Contusion [Unknown]
  - Joint swelling [Unknown]
  - Migraine [Unknown]
